FAERS Safety Report 10738536 (Version 1)
Quarter: 2015Q1

REPORT INFORMATION
  Report Type: Spontaneous
  Country: US (occurrence: None)
  Receive Date: 20150122
  Receipt Date: 20150122
  Transmission Date: 20150721
  Serious: Yes (Hospitalization)
  Sender: FDA-Public Use
  Company Number: None

PATIENT
  Age: 58 Year
  Sex: Male
  Weight: 75 kg

DRUGS (7)
  1. LENALIDOMIDE 5 MG [Suspect]
     Active Substance: LENALIDOMIDE
     Indication: PLASMA CELL MYELOMA
     Dosage: DAYS 1-14
     Route: 048
     Dates: start: 20150105, end: 20150110
  2. VELCADE [Suspect]
     Active Substance: BORTEZOMIB
     Indication: PLASMA CELL MYELOMA
     Dosage: DAYS 1,4,8,11
     Route: 042
     Dates: start: 20150105, end: 20150109
  3. ATORVASTATIN [Concomitant]
     Active Substance: ATORVASTATIN
  4. PROCHLORAPERAZINE [Concomitant]
  5. LORAZEPAM. [Concomitant]
     Active Substance: LORAZEPAM
  6. OMEPRAZOLE. [Concomitant]
     Active Substance: OMEPRAZOLE
  7. DEXAMETHASONE. [Concomitant]
     Active Substance: DEXAMETHASONE

REACTIONS (6)
  - Deep vein thrombosis [None]
  - Ileus [None]
  - Effusion [None]
  - Delirium [None]
  - Pulmonary embolism [None]
  - Mental status changes [None]

NARRATIVE: CASE EVENT DATE: 20150111
